FAERS Safety Report 7864544-2 (Version None)
Quarter: 2011Q4

REPORT INFORMATION
  Report Type: 
  Country: None (occurrence: None)
  Receive Date: 20111028
  Receipt Date: 20111025
  Transmission Date: 20120403
  Serious: No
  Sender: FDA-Public Use
  Company Number: US-PFIZER INC-2011249472

PATIENT
  Sex: Male
  Weight: 74.83 kg

DRUGS (8)
  1. DILANTIN [Suspect]
     Indication: CONVULSION
     Dosage: 100 MG, UNK
     Dates: start: 19720101
  2. DILANTIN [Suspect]
     Dosage: 100MG IN THE MORNING /200MG AT NIGHT AND 200MG TWICE DAILY ALTERNATIVELY BY DAILY BASIS
     Dates: start: 20110101
  3. GLUCOSAMINE [Suspect]
     Indication: ARTHRALGIA
     Dosage: UNK, 2X/DAY
  4. GABAPENTIN [Suspect]
     Indication: CONVULSION
     Dosage: 400 MG, 2X/DAY
  5. MULTI-VITAMINS [Suspect]
     Indication: ROUTINE HEALTH MAINTENANCE
     Dosage: UNK, 2X/DAY
  6. MUCINEX [Suspect]
     Indication: SINUS DISORDER
     Dosage: 1200 MG, 1X/DAY
  7. IBUPROFEN [Suspect]
     Indication: PAIN
     Dosage: 300 MG, 2X/DAY
  8. CLARITIN [Suspect]
     Indication: SINUS DISORDER
     Dosage: 10 MG, 1X/DAILY

REACTIONS (2)
  - TREMOR [None]
  - FEELING ABNORMAL [None]
